FAERS Safety Report 21511165 (Version 1)
Quarter: 2022Q4

REPORT INFORMATION
  Report Type: Spontaneous
  Country: US (occurrence: US)
  Receive Date: 20221027
  Receipt Date: 20221027
  Transmission Date: 20230113
  Serious: Yes (Life-Threatening, Hospitalization, Other)
  Sender: FDA-Public Use
  Company Number: US-drreddys-SPO/USA/22/0156209

PATIENT
  Age: 24 Year
  Sex: Male

DRUGS (5)
  1. PROPOFOL [Suspect]
     Active Substance: PROPOFOL
     Indication: Sedation
     Dosage: MULTIPLE BOLUSES; APPROXIMATELY 188MG/KG WITHIN THE FIRST HOURS AFTER INTUBATION
  2. PROPOFOL [Suspect]
     Active Substance: PROPOFOL
     Indication: Agitation
  3. NOREPINEPHRINE [Suspect]
     Active Substance: NOREPINEPHRINE
     Indication: Hypotension
  4. FENTANYL CITRATE [Concomitant]
     Active Substance: FENTANYL CITRATE
     Indication: Sedation
  5. KETAMINE [Concomitant]
     Active Substance: KETAMINE
     Indication: Agitation

REACTIONS (1)
  - Propofol infusion syndrome [Recovering/Resolving]
